FAERS Safety Report 4536222-9 (Version None)
Quarter: 2004Q4

REPORT INFORMATION
  Report Type: 
  Country: None (occurrence: None)
  Receive Date: 20041223
  Receipt Date: 20041217
  Transmission Date: 20050328
  Serious: Yes (Hospitalization)
  Sender: FDA-Public Use
  Company Number: FR-GLAXOSMITHKLINE-B0362453A

PATIENT
  Age: 89 Year
  Sex: Female
  Weight: 61 kg

DRUGS (5)
  1. AUGMENTIN '125' [Suspect]
     Indication: BRONCHITIS
     Route: 048
     Dates: start: 20030210, end: 20030218
  2. ROCEPHIN [Suspect]
     Indication: BRONCHITIS
     Dosage: 2G PER DAY
     Route: 030
     Dates: start: 20030210, end: 20030218
  3. LASILIX [Suspect]
     Dosage: 40MG PER DAY
     Route: 048
     Dates: start: 20030121, end: 20030218
  4. SEROPRAM [Suspect]
     Dosage: 1UNIT PER DAY
     Route: 048
     Dates: start: 20030121, end: 20030218
  5. MONOTILDIEM [Suspect]
     Indication: ESSENTIAL HYPERTENSION
     Dosage: 200MG PER DAY
     Route: 048
     Dates: start: 20030121, end: 20030218

REACTIONS (6)
  - GINGIVAL BLEEDING [None]
  - HAEMATOMA [None]
  - IDIOPATHIC THROMBOCYTOPENIC PURPURA [None]
  - MOUTH HAEMORRHAGE [None]
  - PURPURA [None]
  - THROMBOCYTOPENIA [None]
